FAERS Safety Report 24584809 (Version 3)
Quarter: 2025Q1

REPORT INFORMATION
  Report Type: Spontaneous
  Country: JP (occurrence: JP)
  Receive Date: 20241106
  Receipt Date: 20250101
  Transmission Date: 20250408
  Serious: Yes (Hospitalization, Other)
  Sender: ROCHE
  Company Number: JP-CHUGAI-2024037866

PATIENT
  Age: 8 Decade
  Sex: Male

DRUGS (1)
  1. HEMLIBRA [Suspect]
     Active Substance: EMICIZUMAB-KXWH
     Indication: Haemophilia A without inhibitors
     Dosage: 6 MILLIGRAM, ONCE/4WEEKS
     Route: 050

REACTIONS (3)
  - Urinary tract infection [Unknown]
  - Dehydration [Recovering/Resolving]
  - Pseudomonas test positive [Unknown]

NARRATIVE: CASE EVENT DATE: 20240101
